FAERS Safety Report 21872053 (Version 1)
Quarter: 2023Q1

REPORT INFORMATION
  Report Type: Spontaneous
  Country: US (occurrence: None)
  Receive Date: 20230114
  Receipt Date: 20230114
  Transmission Date: 20230417
  Serious: Yes (Disabling, Other)
  Sender: FDA-Public Use
  Company Number: None

PATIENT
  Age: 35 Year
  Sex: Female
  Weight: 51.75 kg

DRUGS (5)
  1. PIMECROLIMUS [Suspect]
     Active Substance: PIMECROLIMUS
     Indication: Eczema
     Dosage: FREQUENCY : TWICE A DAY;?
     Route: 062
     Dates: start: 20191023, end: 20220223
  2. VITAMIN D [Concomitant]
     Active Substance: VITAMIN D NOS
  3. VITAMIN B [Concomitant]
     Active Substance: VITAMIN B
  4. TAURINE [Concomitant]
     Active Substance: TAURINE
  5. allegra 60mg [Concomitant]

REACTIONS (9)
  - Rash [None]
  - Withdrawal syndrome [None]
  - Paraesthesia [None]
  - Swelling face [None]
  - Paraesthesia [None]
  - Burning sensation [None]
  - Dependence [None]
  - Ocular hyperaemia [None]
  - Erythema [None]

NARRATIVE: CASE EVENT DATE: 20220225
